FAERS Safety Report 20795567 (Version 1)
Quarter: 2022Q2

REPORT INFORMATION
  Report Type: Spontaneous
  Country: IT (occurrence: IT)
  Receive Date: 20220506
  Receipt Date: 20220506
  Transmission Date: 20220721
  Serious: Yes (Other)
  Sender: FDA-Public Use
  Company Number: None

PATIENT
  Age: 23 Year
  Sex: Male

DRUGS (3)
  1. VALIUM [Suspect]
     Active Substance: DIAZEPAM
     Indication: Intentional self-injury
     Dosage: ; IN TOTAL
     Dates: start: 20220316, end: 20220316
  2. XANAX [Suspect]
     Active Substance: ALPRAZOLAM
     Indication: Intentional self-injury
     Dates: start: 20220316, end: 20220316
  3. CHLORPROMAZINE [Suspect]
     Active Substance: CHLORPROMAZINE
     Indication: Intentional self-injury
     Dosage: ; IN TOTAL

REACTIONS (1)
  - Hypersomnia [Unknown]

NARRATIVE: CASE EVENT DATE: 20220317
